FAERS Safety Report 5339519-8 (Version None)
Quarter: 2007Q2

REPORT INFORMATION
  Report Type: 
  Country: None (occurrence: None)
  Receive Date: 20070404
  Receipt Date: 20060601
  Transmission Date: 20071010
  Serious: Yes (Other)
  Sender: FDA-Public Use
  Company Number: 2006058813

PATIENT
  Age: 91 Year
  Sex: Female
  Weight: 55.3388 kg

DRUGS (1)
  1. GEODON [Suspect]
     Indication: ILL-DEFINED DISORDER
     Dosage: 5 MG (EVERY 6 HOURS), INTRAVENOUS
     Route: 042
     Dates: start: 20060426

REACTIONS (5)
  - CREATININE RENAL CLEARANCE DECREASED [None]
  - EATING DISORDER [None]
  - HAEMATOCRIT DECREASED [None]
  - HAEMOGLOBIN DECREASED [None]
  - INTENTIONAL DRUG MISUSE [None]
